FAERS Safety Report 7157142-X (Version None)
Quarter: 2010Q4

REPORT INFORMATION
  Report Type: 
  Country: None (occurrence: None)
  Receive Date: 20101214
  Receipt Date: 20100104
  Transmission Date: 20110411
  Serious: No
  Sender: FDA-Public Use
  Company Number: US-ASTRAZENECA-2010SE00120

PATIENT
  Age: 66 Year
  Sex: Female
  Weight: 90.7 kg

DRUGS (1)
  1. CRESTOR [Suspect]
     Route: 048
     Dates: start: 20090901, end: 20091201

REACTIONS (8)
  - AMNESIA [None]
  - BLOOD PRESSURE DECREASED [None]
  - CONSTIPATION [None]
  - DISTURBANCE IN ATTENTION [None]
  - FATIGUE [None]
  - HEADACHE [None]
  - HYPOAESTHESIA [None]
  - INSOMNIA [None]
